FAERS Safety Report 16790583 (Version 1)
Quarter: 2019Q3

REPORT INFORMATION
  Report Type: Spontaneous
  Country: CN (occurrence: CN)
  Receive Date: 20190910
  Receipt Date: 20190910
  Transmission Date: 20191005
  Serious: Yes (Life-Threatening)
  Sender: FDA-Public Use
  Company Number: CN-PFIZER INC-2019389290

PATIENT
  Age: 26 Year
  Sex: Male

DRUGS (3)
  1. SODIUM CHLORIDE. [Concomitant]
     Active Substance: SODIUM CHLORIDE
     Indication: VEHICLE SOLUTION USE
     Dosage: 10.000 ML, 1X/DAY
     Route: 040
     Dates: start: 20190903, end: 20190903
  2. COMPOUND AMINOPHENAZONE + BARBITAL [Suspect]
     Active Substance: AMINOPHENAZONE\ANTIPYRINE\BARBITAL
     Indication: PYREXIA
     Dosage: 2.000 ML, 1X/DAY
     Route: 030
     Dates: start: 20190903, end: 20190903
  3. SOLU-MEDROL [Suspect]
     Active Substance: METHYLPREDNISOLONE SODIUM SUCCINATE
     Indication: TONSILLITIS BACTERIAL
     Dosage: 40.000 MG, 1X/DAY
     Route: 040
     Dates: start: 20190903, end: 20190903

REACTIONS (2)
  - Anaphylactic shock [Recovered/Resolved]
  - Oxygen saturation decreased [Recovered/Resolved]

NARRATIVE: CASE EVENT DATE: 20190903
